FAERS Safety Report 13775157 (Version 1)
Quarter: 2017Q3

REPORT INFORMATION
  Report Type: Spontaneous
  Country: US (occurrence: US)
  Receive Date: 20170721
  Receipt Date: 20170721
  Transmission Date: 20171127
  Serious: No
  Sender: FDA-Public Use
  Company Number: US-BAYER-2017-134090

PATIENT
  Sex: Female

DRUGS (1)
  1. MIRENA [Suspect]
     Active Substance: LEVONORGESTREL
     Indication: ENDOMETRIAL DISORDER
     Dosage: 20 MCG/24HR, CONT
     Route: 015

REACTIONS (3)
  - Therapeutic response unexpected [None]
  - Off label use [None]
  - Device use issue [None]
